FAERS Safety Report 8772765 (Version 1)
Quarter: 2012Q4

REPORT INFORMATION
  Report Type: 
  Country: ES (occurrence: ES)
  Receive Date: 20120911
  Receipt Date: 20120911
  Transmission Date: 20130627
  Serious: Yes (Life-Threatening, Hospitalization)
  Sender: FDA-Public Use
  Company Number: ES-PFIZER INC-2012220209

PATIENT
  Age: 75 Year
  Sex: Male

DRUGS (6)
  1. AMLODIPINE/OLMESARTAN MEDOXOMIL [Suspect]
     Dosage: 10/40mg
     Route: 048
     Dates: start: 2010, end: 20120620
  2. SPIRONOLACTONE [Interacting]
     Indication: CARDIAC FAILURE
     Dosage: 100 mg, 2x/day
     Route: 048
     Dates: start: 2010, end: 20120620
  3. ARTIST [Interacting]
     Indication: ISCHAEMIC CARDIOMYOPATHY
     Dosage: 12.5 mg, 1x/day
     Route: 048
     Dates: start: 2011, end: 20120620
  4. CORLENTOR [Interacting]
     Indication: ISCHAEMIC CARDIOMYOPATHY
     Dosage: 5 mg, 2x/day
     Route: 048
     Dates: start: 2011, end: 20120620
  5. FUROSEMIDE [Interacting]
     Indication: CARDIAC FAILURE
     Dosage: 120 mg, 1x/day
     Route: 048
     Dates: start: 2010
  6. NITROGLICERINA [Interacting]
     Indication: ISCHAEMIC CARDIOMYOPATHY
     Dosage: 10 mg, 1x/day
     Route: 048
     Dates: start: 2011, end: 20120620

REACTIONS (4)
  - Renal failure acute [Recovered/Resolved]
  - Nodal rhythm [Recovered/Resolved]
  - Hyperkalaemia [Recovered/Resolved]
  - Drug interaction [Recovered/Resolved]
